FAERS Safety Report 24690871 (Version 1)
Quarter: 2024Q4

REPORT INFORMATION
  Report Type: Spontaneous
  Country: DE (occurrence: DE)
  Receive Date: 20241203
  Receipt Date: 20241203
  Transmission Date: 20250115
  Serious: Yes (Hospitalization, Other)
  Sender: ASCEND THERAPEUTICS US, LLC
  Company Number: DE-Ascend Therapeutics US, LLC-2166384

PATIENT
  Sex: Female

DRUGS (3)
  1. ESTROGEL [Suspect]
     Active Substance: ESTRADIOL
     Indication: Menopausal symptoms
     Dates: start: 20241027, end: 20241110
  2. ESTRADIOL HEMIHYDRATE [Suspect]
     Active Substance: ESTRADIOL HEMIHYDRATE
     Dates: start: 20241027, end: 20241110
  3. PROGESTERONE [Suspect]
     Active Substance: PROGESTERONE
     Dates: start: 20241027, end: 20241110

REACTIONS (7)
  - Pulmonary embolism [Recovering/Resolving]
  - Nausea [Unknown]
  - Vomiting [Unknown]
  - Circulatory collapse [Unknown]
  - Palpitations [Unknown]
  - Chest pain [Unknown]
  - Right ventricular failure [Recovering/Resolving]

NARRATIVE: CASE EVENT DATE: 20241110
